FAERS Safety Report 7865323-2 (Version None)
Quarter: 2011Q4

REPORT INFORMATION
  Report Type: 
  Country: None (occurrence: None)
  Receive Date: 20111028
  Receipt Date: 20111021
  Transmission Date: 20120403
  Serious: Yes (Death)
  Sender: FDA-Public Use
  Company Number: IE-AMGEN-IRLSP2011054772

PATIENT
  Age: 75 Year
  Sex: Male

DRUGS (5)
  1. LOPRAZ [Concomitant]
  2. FERROGRAD                          /00023503/ [Concomitant]
  3. ALLOPURINOL [Concomitant]
  4. WARFARIN SODIUM [Concomitant]
  5. ARANESP [Suspect]
     Indication: RENAL FAILURE CHRONIC
     Dosage: 30 MUG, QMO
     Route: 058
     Dates: start: 20100527

REACTIONS (1)
  - DEATH [None]
